FAERS Safety Report 7260900-4 (Version None)
Quarter: 2011Q1

REPORT INFORMATION
  Report Type: 
  Country: None (occurrence: None)
  Receive Date: 20110128
  Receipt Date: 20110128
  Transmission Date: 20110831
  Serious: Yes (Other)
  Sender: FDA-Public Use
  Company Number: None

PATIENT
  Age: 59 Year
  Sex: Male
  Weight: 81.6475 kg

DRUGS (1)
  1. TRIAD GROUP ALCOHOL PREP PADS [Suspect]
     Indication: HEPATITIS C

REACTIONS (6)
  - ANAEMIA [None]
  - WHITE BLOOD CELL COUNT ABNORMAL [None]
  - INJECTION SITE DISCOLOURATION [None]
  - INJECTION SITE PAIN [None]
  - RED BLOOD CELL COUNT ABNORMAL [None]
  - INJECTION SITE SWELLING [None]
